FAERS Safety Report 7409614-8 (Version None)
Quarter: 2011Q2

REPORT INFORMATION
  Report Type: 
  Country: None (occurrence: None)
  Receive Date: 20110412
  Receipt Date: 20110329
  Transmission Date: 20111010
  Serious: Yes (Other)
  Sender: FDA-Public Use
  Company Number: GB-JNJFOC-2007302711

PATIENT
  Age: 54 Year
  Sex: Male

DRUGS (47)
  1. BACTROBAN [Suspect]
     Indication: PRODUCT USED FOR UNKNOWN INDICATION
     Dosage: DAILY DOSE TEXT: UNKNOWN
     Route: 065
  2. CALCIUM CHLORIDE [Suspect]
     Indication: PRODUCT USED FOR UNKNOWN INDICATION
     Dosage: DAILY DOSE TEXT: UNKNOWN
     Route: 065
  3. CLEXANE [Suspect]
     Indication: PRODUCT USED FOR UNKNOWN INDICATION
     Dosage: DAILY DOSE TEXT: 20MG 1/1DAYS
     Route: 058
  4. PIRITON [Suspect]
     Indication: PRODUCT USED FOR UNKNOWN INDICATION
     Dosage: DAILY DOSE TEXT: 10MG 4/1DAYS
     Route: 042
  5. SANDO K [Suspect]
     Indication: PRODUCT USED FOR UNKNOWN INDICATION
     Dosage: DAILY DOSE TEXT: 2 DL 3/1DAYS
     Route: 065
  6. ASPIRIN [Concomitant]
     Dosage: DAILY DOSE TEXT: UNKNOWN
     Route: 048
  7. TAZOCIN [Concomitant]
     Dosage: DAILY DOSE TEXT: 4.5G 3/1DAYS
     Route: 065
  8. ZOPLICONE [Concomitant]
     Dosage: DAILY DOSE TEXT: UNKNOWN
     Route: 048
  9. FLUCONAZOLE [Suspect]
     Indication: PRODUCT USED FOR UNKNOWN INDICATION
     Dosage: DAILY DOSE TEXT: 200 MG 1/1DAYS
     Route: 042
  10. SODIUM CHLORIDE [Suspect]
     Indication: PRODUCT USED FOR UNKNOWN INDICATION
     Dosage: DAILY DOSE TEXT: 0.9%
     Route: 042
  11. SIMVASTATIN [Suspect]
     Indication: PRODUCT USED FOR UNKNOWN INDICATION
     Dosage: DAILY DOSE TEXT: 40MG 1/1DAYS
     Route: 065
  12. TINZAPARIN SODIUM [Suspect]
     Indication: PRODUCT USED FOR UNKNOWN INDICATION
     Dosage: DAILY DOSE TEXT: 3500 MICROLITERS 1/1DAYS
     Route: 065
  13. HYDROCORTISONE [Suspect]
     Indication: PRODUCT USED FOR UNKNOWN INDICATION
     Dosage: DAILY DOSE TEXT: 100MG 1 TOTAL
     Route: 065
  14. LORAZEPAM [Suspect]
     Indication: PRODUCT USED FOR UNKNOWN INDICATION
     Dosage: DAILY DOSE TEXT: UNKNOWN
     Route: 065
  15. ACTRAPID [Suspect]
     Indication: PRODUCT USED FOR UNKNOWN INDICATION
     Dosage: DAILY DOSE TEXT: UNKNOWN
     Route: 042
  16. VANCOMYCIN [Concomitant]
     Dosage: DAILY DOSE TEXT: 1G 1/1DAYS
     Route: 042
  17. LANSOPRAZOLE [Suspect]
     Indication: PRODUCT USED FOR UNKNOWN INDICATION
     Dosage: DAILY DOSE TEXT: 30MG
     Route: 065
  18. PANTOPRAZOLE [Concomitant]
     Dosage: DAILY DOSE TEXT: 40MG
     Route: 042
  19. PARACETAMOL [Suspect]
     Indication: PRODUCT USED FOR UNKNOWN INDICATION
     Dosage: DAILY DOSE TEXT: UNKNOWN
     Route: 065
  20. AQUASEPT [Suspect]
     Indication: PRODUCT USED FOR UNKNOWN INDICATION
     Dosage: DAILY DOSE TEXT: UNKNOWN
     Route: 065
  21. CALCIUM GLUCONATE [Suspect]
     Indication: PRODUCT USED FOR UNKNOWN INDICATION
     Dosage: DAILY DOSE TEXT: 10ML
     Route: 042
  22. ATROVENT [Concomitant]
     Dosage: DAILY DOSE TEXT: AS NECESSARY
     Route: 065
  23. CIPROFLOXACIN [Concomitant]
     Dosage: DAILY DOSE TEXT: 400MG 1/1DAYS
     Route: 042
  24. AMPICILLIN SODIUM/SULBACTAM SODIUM [Concomitant]
     Dosage: DAILY DOSE TEXT: 375MG 3/1DAYS
     Route: 065
     Dates: start: 20060913
  25. MIDODRINE HYDROCHLORIDE [Concomitant]
     Dosage: DAILY DOSE TEXT: UNKNOWN
     Route: 048
  26. FUROSEMIDE [Suspect]
     Indication: PRODUCT USED FOR UNKNOWN INDICATION
     Dosage: DAILY DOSE TEXT: 20MG 2/1 DAYS
     Route: 042
  27. PARACETAMOL [Suspect]
     Route: 065
  28. POTASSIUM CHLORIDE [Suspect]
     Indication: PRODUCT USED FOR UNKNOWN INDICATION
     Dosage: DAILY DOSE TEXT: UNKNOWN
     Route: 065
  29. AMOXICILLIN [Suspect]
     Indication: PRODUCT USED FOR UNKNOWN INDICATION
     Dosage: DAILY DOSE TEXT: 1 G 3/1 DAYS
     Route: 042
  30. ALFENTANIL [Suspect]
     Indication: PRODUCT USED FOR UNKNOWN INDICATION
     Dosage: DAILY DOSE TEXT: UNKNOWN
     Route: 065
  31. DOBUTAMINE HCL [Suspect]
     Indication: PRODUCT USED FOR UNKNOWN INDICATION
     Dosage: DAILY DOSE TEXT: UNKNOWN
     Route: 065
  32. VITAMIN K TAB [Suspect]
     Indication: PRODUCT USED FOR UNKNOWN INDICATION
     Dosage: DAILY DOSE TEXT: UNKNOWN
     Route: 065
  33. METOCLOPRAMIDE [Concomitant]
     Dosage: DAILY DOSE TEXT: 10MG
     Route: 042
  34. DALTEPARIN SODIUM [Suspect]
     Indication: PRODUCT USED FOR UNKNOWN INDICATION
     Dosage: DAILY DOSE TEXT: 2500 IU 1/1 DAYS
     Route: 058
  35. ALBUTEROL SULFATE AUTOHALER [Suspect]
     Indication: PRODUCT USED FOR UNKNOWN INDICATION
     Dosage: DAILY DOSE TEXT: AS NECESSARY
     Route: 065
  36. NORADRENALINE [Suspect]
     Indication: PRODUCT USED FOR UNKNOWN INDICATION
     Dosage: DAILY DOSE TEXT: UNKNOWN
     Route: 065
  37. POTASSIUM PHOSPHATES [Suspect]
     Indication: PRODUCT USED FOR UNKNOWN INDICATION
     Dosage: DAILY DOSE TEXT: UNKNOWN
     Route: 065
  38. THIAMINE HCL [Suspect]
     Indication: PRODUCT USED FOR UNKNOWN INDICATION
     Dosage: DAILY DOSE TEXT: 100 MG 1/1DAYS
     Route: 048
  39. ERYTHROMYCIN [Concomitant]
     Dosage: DAILY DOSE TEXT: 250MG
     Route: 065
  40. CEFTRIAXONE [Suspect]
     Indication: PRODUCT USED FOR UNKNOWN INDICATION
     Dosage: DAILY DOSE TEXT: 2 G
     Route: 042
  41. LACTULOSE [Suspect]
     Indication: PRODUCT USED FOR UNKNOWN INDICATION
     Dosage: DAILY DOSE TEXT: 10 ML
     Route: 065
  42. MAGNESIUM SULFATE [Suspect]
     Indication: PRODUCT USED FOR UNKNOWN INDICATION
     Dosage: DAILY DOSE TEXT: UNKNOWN
     Route: 065
  43. OMEPRAZOLE [Suspect]
     Indication: PRODUCT USED FOR UNKNOWN INDICATION
     Dosage: DAILY DOSE TEXT: 40MG
     Route: 042
  44. PROPOFOL [Suspect]
     Indication: PRODUCT USED FOR UNKNOWN INDICATION
     Dosage: DAILY DOSE TEXT: UNKNOWN
     Route: 065
  45. SULFADIAZINE [Suspect]
     Indication: PRODUCT USED FOR UNKNOWN INDICATION
     Dosage: DAILY DOSE TEXT: UNKNOWN
     Route: 061
  46. SODIUM BICARBONATE [Suspect]
     Indication: PRODUCT USED FOR UNKNOWN INDICATION
     Dosage: DAILY DOSE TEXT: 100MG 1 HOUR
     Route: 042
  47. AMOXICILLIN [Concomitant]
     Dosage: DAILY DOSE TEXT: 250MG
     Route: 048
     Dates: start: 20060913

REACTIONS (1)
  - TOXIC EPIDERMAL NECROLYSIS [None]
